FAERS Safety Report 5727145-8 (Version None)
Quarter: 2008Q2

REPORT INFORMATION
  Report Type: 
  Country: None (occurrence: None)
  Receive Date: 20080430
  Receipt Date: 20080417
  Transmission Date: 20081010
  Serious: Yes (Death)
  Sender: FDA-Public Use
  Company Number: 2008S1004268

PATIENT
  Age: 45 Year
  Sex: Female

DRUGS (16)
  1. AZATHIOPRINE [Suspect]
     Indication: SYSTEMIC LUPUS ERYTHEMATOSUS
  2. CYCLOPHOSPHAMIDE [Suspect]
     Indication: SYSTEMIC LUPUS ERYTHEMATOSUS
     Dosage: ORAL
     Route: 048
  3. PREDNISOLONE [Suspect]
     Indication: SYSTEMIC LUPUS ERYTHEMATOSUS
     Dates: start: 20020601, end: 20030601
  4. RITIUXIMAB (RITUXIMAB) [Suspect]
     Indication: SYSTEMIC LUPUS ERYTHEMATOSUS
     Dosage: 375 MG; UNKNOWN
     Dates: start: 20020401, end: 20050515
  5. RITIUXIMAB (RITUXIMAB) [Suspect]
     Indication: SYSTEMIC LUPUS ERYTHEMATOSUS
     Dosage: 375 MG; UNKNOWN
     Dates: start: 20020801, end: 20050901
  6. CORTICOSTEROIDS (CORTICOSTEROIDS) [Suspect]
     Indication: SYSTEMIC LUPUS ERYTHEMATOSUS
  7. LEVOTHYROXINE SODIUM [Concomitant]
  8. PROBENECID [Concomitant]
  9. NUVELLE/00346801(CYCLO-PROGYNOVA/00346801) [Concomitant]
  10. LEVOMEPROMAZINE (LEVOMEPROMNAZINE) [Concomitant]
  11. IMMUNE GLOBULIN INTRAVENOUS (HUMAN) [Concomitant]
  12. HYDROXYCHLOROQUINE SULFATE [Concomitant]
  13. FOLIC ACID [Concomitant]
  14. CLARITYN/00082102/(CROMOGLICATE SODIUM) [Concomitant]
  15. CALCICHEW D3 (LEKOVIT CA) [Concomitant]
  16. AMLODIPINE [Concomitant]

REACTIONS (18)
  - ATAXIA [None]
  - BALANCE DISORDER [None]
  - BONE MARROW TOXICITY [None]
  - CEREBELLAR SYNDROME [None]
  - CYSTITIS HAEMORRHAGIC [None]
  - DYSARTHRIA [None]
  - DYSPHAGIA [None]
  - DYSPHASIA [None]
  - HERPES ZOSTER [None]
  - JC VIRUS INFECTION [None]
  - LYMPHOCYTE COUNT DECREASED [None]
  - NYSTAGMUS [None]
  - PAST-POINTING [None]
  - PNEUMONIA [None]
  - PROGRESSIVE MULTIFOCAL LEUKOENCEPHALOPATHY [None]
  - RESPIRATORY FAILURE [None]
  - VISION BLURRED [None]
  - WEIGHT DECREASED [None]
